FAERS Safety Report 21664375 (Version 4)
Quarter: 2023Q2

REPORT INFORMATION
  Report Type: Report from Study
  Country: US (occurrence: US)
  Receive Date: 20221130
  Receipt Date: 20230405
  Transmission Date: 20230721
  Serious: Yes (Life-Threatening, Hospitalization, Other)
  Sender: FDA-Public Use
  Company Number: US-BRISTOL-MYERS SQUIBB COMPANY-2022-132632

PATIENT
  Age: 73 Year
  Sex: Female

DRUGS (10)
  1. ELIQUIS [Suspect]
     Active Substance: APIXABAN
     Indication: Antiplatelet therapy
     Dosage: 2.5 MG, 2X/DAY
     Route: 048
     Dates: start: 20220322
  2. PACLITAXEL [Suspect]
     Active Substance: PACLITAXEL
     Indication: Ovarian cancer
     Dosage: FREQUENCY- 129 MG DAYS 1,8,15 /CYCLE
     Route: 042
     Dates: start: 20221004
  3. PACLITAXEL [Suspect]
     Active Substance: PACLITAXEL
     Dosage: CYCLE 1 DAY 8 (C1D8)
     Route: 042
     Dates: start: 20221011
  4. CLOPIDOGREL [Concomitant]
     Active Substance: CLOPIDOGREL BISULFATE
     Indication: Antiplatelet therapy
     Dosage: 75 MG, 1X/DAY
     Route: 048
     Dates: start: 20220322
  5. RANOLAZINE [Concomitant]
     Active Substance: RANOLAZINE
     Indication: Coronary artery disease
     Dosage: 1000 MG, 2X/DAY
     Route: 048
     Dates: start: 20220322
  6. VICTOZA [Concomitant]
     Active Substance: LIRAGLUTIDE
     Indication: Diabetes mellitus
     Dosage: 1.2 MG, 1X/DAY
     Route: 058
     Dates: start: 20141006
  7. DOXYCYCLINE [Concomitant]
     Active Substance: DOXYCYCLINE
     Indication: Urinary tract infection
     Dosage: 100 MG, 2X/DAY
     Route: 048
     Dates: start: 20221111
  8. SODIUM CHLORIDE [Concomitant]
     Active Substance: SODIUM CHLORIDE
     Indication: Dehydration
     Dosage: 1000 ML IV OVER 2 HOURS ONCE FOR DEHYDRATION
     Route: 042
     Dates: start: 20221108
  9. FILGRASTIM [Concomitant]
     Active Substance: FILGRASTIM
     Indication: Neutropenia
     Dosage: 480 UG SUBCUTANEOUSLY DAILY FOR NEUTROPENIA
     Route: 058
     Dates: start: 20221108, end: 20221111
  10. CEFEPIME [Concomitant]
     Active Substance: CEFEPIME HYDROCHLORIDE
     Indication: Prophylaxis
     Dosage: 2000 MG IV EVERY 8 HOURS FOR PROPHYLAXIS
     Route: 042
     Dates: start: 20221108, end: 20221111

REACTIONS (4)
  - Neutropenia [Recovered/Resolved]
  - Muscular weakness [Recovered/Resolved]
  - Off label use [Unknown]
  - Urinary tract infection [Unknown]

NARRATIVE: CASE EVENT DATE: 20221018
